FAERS Safety Report 18564340 (Version 1)
Quarter: 2020Q4

REPORT INFORMATION
  Report Type: Spontaneous
  Country: US (occurrence: US)
  Receive Date: 20201130
  Receipt Date: 20201130
  Transmission Date: 20210114
  Serious: No
  Sender: FDA-Public Use
  Company Number: None

PATIENT
  Age: 48 Year
  Sex: Male
  Weight: 173.61 kg

DRUGS (8)
  1. IBUPROFEN 600 MG [Concomitant]
     Active Substance: IBUPROFEN
  2. SERTRALINE [Concomitant]
     Active Substance: SERTRALINE HYDROCHLORIDE
  3. CHLORTHALIDONE 25 MG [Concomitant]
     Active Substance: CHLORTHALIDONE
  4. BISOPROLOL [Suspect]
     Active Substance: BISOPROLOL
     Indication: HYPERTENSION
     Route: 048
     Dates: start: 20201124, end: 20201125
  5. LOSARTAN 100 MG [Concomitant]
     Active Substance: LOSARTAN
  6. METFORMIN [Concomitant]
     Active Substance: METFORMIN HYDROCHLORIDE
  7. VENTOLIN [Concomitant]
     Active Substance: ALBUTEROL SULFATE
  8. LIVALO [Concomitant]
     Active Substance: PITAVASTATIN CALCIUM

REACTIONS (3)
  - Asthenia [None]
  - Feeling abnormal [None]
  - Dry mouth [None]

NARRATIVE: CASE EVENT DATE: 20201124
